FAERS Safety Report 5216609-1 (Version None)
Quarter: 2007Q1

REPORT INFORMATION
  Report Type: 
  Country: None (occurrence: None)
  Receive Date: 20061130
  Receipt Date: 20060810
  Transmission Date: 20070707
  Serious: Yes (Other)
  Sender: FDA-Public Use
  Company Number: US200608002374

PATIENT
  Age: 40 Year
  Sex: Female
  Weight: 145.1 kg

DRUGS (2)
  1. ZYPREXA [Suspect]
     Indication: SCHIZOPHRENIA
     Dosage: 10 MG, DAILY (1/D); UNK; 5MG,
     Dates: start: 20050801, end: 20050901
  2. ZYPREXA [Suspect]
     Indication: SCHIZOPHRENIA
     Dosage: 10 MG, DAILY (1/D); UNK; 5MG,
     Dates: start: 20050901

REACTIONS (2)
  - SOMNOLENCE [None]
  - WEIGHT INCREASED [None]
